FAERS Safety Report 16743707 (Version 1)
Quarter: 2019Q3

REPORT INFORMATION
  Report Type: Report from Study
  Country: US (occurrence: US)
  Receive Date: 20190827
  Receipt Date: 20190827
  Transmission Date: 20191005
  Serious: Yes (Death, Other)
  Sender: FDA-Public Use
  Company Number: US-PUMA BIOTECHNOLOGY, LTD.-2019US006154

PATIENT

DRUGS (2)
  1. NERLYNX [Suspect]
     Active Substance: NERATINIB
     Dosage: 3 TABLETS, BID
     Route: 048
     Dates: start: 2019, end: 2019
  2. NERLYNX [Suspect]
     Active Substance: NERATINIB
     Indication: BREAST CANCER FEMALE
     Dosage: 6 TABLETS, DAILY
     Route: 048
     Dates: start: 2019, end: 2019

REACTIONS (7)
  - Nausea [Unknown]
  - Diarrhoea [Unknown]
  - Brain neoplasm [Unknown]
  - Sinusitis [Unknown]
  - Abdominal pain [Unknown]
  - Memory impairment [Recovering/Resolving]
  - Death [Fatal]

NARRATIVE: CASE EVENT DATE: 2019
